FAERS Safety Report 8458186 (Version 2)
Quarter: 2012Q4

REPORT INFORMATION
  Report Type: Report from Study
  Country: DE (occurrence: DE)
  Receive Date: 20120314
  Receipt Date: 20121212
  Transmission Date: 20130627
  Serious: Yes (Hospitalization, Other)
  Sender: FDA-Public Use
  Company Number: DE-BAYER-2012-002672

PATIENT
  Age: 63 Year
  Sex: Male
  Weight: 66 kg

DRUGS (4)
  1. SORAFENIB (RAF KINASE INHIBITOR) [Suspect]
     Indication: CARCINOMA HEPATOCELLULAR
     Dosage: 400 mg, daily
     Dates: start: 20110210, end: 20110302
  2. SORAFENIB (RAF KINASE INHIBITOR) [Suspect]
     Indication: CARCINOMA HEPATOCELLULAR
     Dosage: 800 mg, daily
     Dates: start: 20110303, end: 20110707
  3. SORAFENIB (RAF KINASE INHIBITOR) [Suspect]
     Indication: CARCINOMA HEPATOCELLULAR
     Dosage: 400 mg, daily
     Dates: start: 20110805, end: 20110828
  4. SORAFENIB (RAF KINASE INHIBITOR) [Suspect]
     Indication: CARCINOMA HEPATOCELLULAR
     Dosage: 600 mg, daily
     Dates: start: 20110829, end: 20111214

REACTIONS (3)
  - Hepatic encephalopathy [Recovered/Resolved]
  - Hepatic encephalopathy [Recovering/Resolving]
  - Diarrhoea [Recovering/Resolving]
